FAERS Safety Report 5026827-3 (Version None)
Quarter: 2006Q2

REPORT INFORMATION
  Report Type: 
  Country: None (occurrence: None)
  Receive Date: 20060609
  Receipt Date: 20060526
  Transmission Date: 20061013
  Serious: Yes (Hospitalization)
  Sender: FDA-Public Use
  Company Number: TAP2006Q00952

PATIENT
  Age: 9 Month
  Sex: Male

DRUGS (2)
  1. PREVACID [Suspect]
     Indication: GASTROOESOPHAGEAL REFLUX DISEASE
     Dosage: 7.5 MG, 2 IN 1 D, GASTROSTOMY TUBE
  2. ERYTHROMYCIN [Concomitant]

REACTIONS (4)
  - CSF PROTEIN ABNORMAL [None]
  - PERITONEAL ABSCESS [None]
  - PYREXIA [None]
  - WHITE BLOOD CELL COUNT INCREASED [None]
